FAERS Safety Report 4546403-6 (Version None)
Quarter: 2005Q1

REPORT INFORMATION
  Report Type: 
  Country: None (occurrence: None)
  Receive Date: 20050103
  Receipt Date: 20041221
  Transmission Date: 20050727
  Serious: Yes (Hospitalization)
  Sender: FDA-Public Use
  Company Number: 2002118227ES

PATIENT
  Age: 58 Year
  Sex: Male

DRUGS (8)
  1. CAMPTOSAR [Suspect]
     Indication: COLORECTAL CANCER
     Dosage: 356 MG (DAILY CYCLIC) INTRAVENOUS
     Route: 042
     Dates: start: 20011017, end: 20020311
  2. LEUCOVORIN CALCIUM [Suspect]
     Indication: COLORECTAL CANCER
     Dosage: 800 MG (DAILY, CYCLIC) INTRAVENOUS
     Route: 042
     Dates: start: 20011017, end: 20020311
  3. FLUOROURACIL [Suspect]
     Indication: COLORECTAL CANCER
     Dosage: 3960 MG (DAILY, CYCLIC) INTRAVENOUS
     Route: 042
     Dates: start: 20011017, end: 20020311
  4. ACETYLSALICYLIC ACID SRT [Concomitant]
  5. GRANISETRON [Concomitant]
  6. DEXAMETHASONE [Concomitant]
  7. ATROPINE [Concomitant]
  8. ACETYLCYSTEINE [Concomitant]

REACTIONS (4)
  - HEADACHE [None]
  - NYSTAGMUS [None]
  - POSITIVE ROMBERGISM [None]
  - VERTIGO [None]
